FAERS Safety Report 10660946 (Version 1)
Quarter: 2014Q4

REPORT INFORMATION
  Report Type: Spontaneous
  Country: JP (occurrence: JP)
  Receive Date: 20141218
  Receipt Date: 20141218
  Transmission Date: 20150529
  Serious: Yes (Hospitalization)
  Sender: FDA-Public Use
  Company Number: JP-JNJFOC-20141205749

PATIENT
  Sex: Male

DRUGS (3)
  1. FLORID [Suspect]
     Active Substance: MICONAZOLE
     Indication: CANDIDA INFECTION
     Route: 049
     Dates: start: 20141027
  2. WARFARIN [Interacting]
     Active Substance: WARFARIN
     Indication: PRODUCT USED FOR UNKNOWN INDICATION
     Route: 048
  3. FLORID [Suspect]
     Active Substance: MICONAZOLE
     Indication: ORAL FUNGAL INFECTION
     Route: 049
     Dates: start: 20141027

REACTIONS (5)
  - Haemorrhage [Unknown]
  - Drug interaction [Unknown]
  - Anaemia [Unknown]
  - Dyspnoea [Unknown]
  - Peripheral swelling [Unknown]

NARRATIVE: CASE EVENT DATE: 20141103
